FAERS Safety Report 10063311 (Version 1)
Quarter: 2014Q2

REPORT INFORMATION
  Report Type: Spontaneous
  Country: BR (occurrence: BR)
  Receive Date: 20140407
  Receipt Date: 20140407
  Transmission Date: 20141212
  Serious: Yes (Hospitalization)
  Sender: FDA-Public Use
  Company Number: BR-PFIZER INC-2014093729

PATIENT
  Age: 100 Year
  Sex: Female
  Weight: 99 kg

DRUGS (3)
  1. LIPITOR [Suspect]
     Indication: CARDIOVASCULAR DISORDER
     Dosage: 10 MG, 1X/DAY
     Route: 048
     Dates: start: 20090401
  2. DIOVANE [Concomitant]
     Indication: BLOOD PRESSURE
     Dosage: 40 MG, DAILY
     Dates: start: 1999
  3. ANCORON [Concomitant]
     Indication: ARRHYTHMIA
     Dosage: 50 MG, UNK
     Dates: start: 2006

REACTIONS (2)
  - Cerebrovascular accident [Unknown]
  - Off label use [Unknown]
